FAERS Safety Report 8781996 (Version 1)
Quarter: 2012Q4

REPORT INFORMATION
  Report Type: Report from Study
  Country: US (occurrence: US)
  Receive Date: 20120913
  Receipt Date: 20120913
  Transmission Date: 20130627
  Serious: No
  Sender: FDA-Public Use
  Company Number: US-VERTEX PHARMACEUTICAL INC.-AE-2012-008690

PATIENT

DRUGS (5)
  1. INCIVEK [Suspect]
     Indication: HEPATITIS C
     Route: 048
     Dates: start: 20120420
  2. CENTRUM SILVER [Concomitant]
     Route: 048
  3. LISIONOPRIL/HCTZ [Concomitant]
     Route: 048
  4. CLONIDINE [Concomitant]
     Route: 048
  5. TRAMADOL HCL ER [Concomitant]
     Route: 048

REACTIONS (6)
  - Dizziness [Unknown]
  - Anaemia [Unknown]
  - Pruritus generalised [Unknown]
  - Anal haemorrhage [Unknown]
  - Anal pruritus [Unknown]
  - Nausea [Unknown]
